FAERS Safety Report 8830403 (Version 1)
Quarter: 2012Q4

REPORT INFORMATION
  Report Type: 
  Country: US (occurrence: US)
  Receive Date: 20121009
  Receipt Date: 20121009
  Transmission Date: 20130627
  Serious: No
  Sender: FDA-Public Use
  Company Number: US-009507513-1210USA003672

PATIENT
  Age: 71 Year
  Sex: Female

DRUGS (5)
  1. PRINIVIL [Suspect]
     Indication: CARDIAC DISORDER
  2. PRINIVIL [Suspect]
     Indication: BLOOD CHOLESTEROL
  3. WARFARIN [Concomitant]
  4. ATORVASTATIN [Concomitant]
  5. CARDIZEM [Concomitant]

REACTIONS (1)
  - Urticaria [Unknown]
